FAERS Safety Report 6691652-4 (Version None)
Quarter: 2010Q2

REPORT INFORMATION
  Report Type: 
  Country: None (occurrence: None)
  Receive Date: 20100422
  Receipt Date: 20091102
  Transmission Date: 20101027
  Serious: No
  Sender: FDA-Public Use
  Company Number: US-ASTRAZENECA-2009SE24032

PATIENT
  Sex: Female

DRUGS (2)
  1. METOPROLOL SUCCINATE [Suspect]
     Route: 048
  2. ALTACE [Concomitant]

REACTIONS (3)
  - COLD SWEAT [None]
  - PALPITATIONS [None]
  - SLEEP DISORDER [None]
